FAERS Safety Report 6442397-7 (Version None)
Quarter: 2009Q4

REPORT INFORMATION
  Report Type: 
  Country: None (occurrence: None)
  Receive Date: 20091112
  Receipt Date: 20091028
  Transmission Date: 20100525
  Serious: Yes (Hospitalization)
  Sender: FDA-Public Use
  Company Number: AUR-APL-2009-01106

PATIENT
  Age: 58 Year
  Sex: Male

DRUGS (9)
  1. TERBINAFINE HCL [Suspect]
     Indication: ONYCHOMYCOSIS
     Dosage: 250MG, ORAL
     Route: 048
     Dates: start: 20090906
  2. PREGALIN [Concomitant]
  3. TENOXICAM [Concomitant]
  4. BISOPROLOL [Concomitant]
  5. LANSOPRAZOLE [Concomitant]
  6. ORAMORPH SR [Concomitant]
  7. QUININE SULFATE [Concomitant]
  8. SIMVASTATIN [Concomitant]
  9. TRAMADOL HCL [Concomitant]

REACTIONS (1)
  - PANCREATITIS [None]
